FAERS Safety Report 15772828 (Version 1)
Quarter: 2018Q4

REPORT INFORMATION
  Report Type: Spontaneous
  Country: JP (occurrence: JP)
  Receive Date: 20181228
  Receipt Date: 20181228
  Transmission Date: 20190205
  Serious: Yes (Other)
  Sender: FDA-Public Use
  Company Number: JP-UNICHEM PHARMACEUTICALS (USA) INC-UCM201812-000367

PATIENT
  Age: 68 Year
  Sex: Male

DRUGS (1)
  1. BISOPROLOL FUMARATE. [Suspect]
     Active Substance: BISOPROLOL FUMARATE
     Indication: ATRIAL FIBRILLATION

REACTIONS (4)
  - Electrocardiogram abnormal [Recovered/Resolved]
  - Arteriospasm coronary [Recovered/Resolved]
  - Cardio-respiratory arrest [Recovered/Resolved]
  - Chest pain [Recovered/Resolved]
